FAERS Safety Report 7898163-9 (Version None)
Quarter: 2011Q4

REPORT INFORMATION
  Report Type: 
  Country: None (occurrence: None)
  Receive Date: 20111107
  Receipt Date: 20111028
  Transmission Date: 20120403
  Serious: Yes (Hospitalization, Other)
  Sender: FDA-Public Use
  Company Number: US-MERCK-1107USA03265

PATIENT
  Age: 64 Year
  Sex: Female
  Weight: 75 kg

DRUGS (7)
  1. ADALAT CC [Concomitant]
     Route: 048
  2. ADALAT [Concomitant]
     Route: 048
  3. LEVOTHYROXINE SODIUM [Concomitant]
     Route: 048
  4. SYNTHROID [Concomitant]
     Route: 048
  5. HYDROCHLOROTHIAZIDE [Concomitant]
     Route: 048
  6. FOSAMAX [Suspect]
     Indication: OSTEOPENIA
     Route: 048
     Dates: start: 20050201, end: 20101201
  7. MONOPRIL [Concomitant]
     Route: 048

REACTIONS (37)
  - PYREXIA [None]
  - HYPERLIPIDAEMIA [None]
  - HEADACHE [None]
  - MUCOUS STOOLS [None]
  - ESSENTIAL HYPERTENSION [None]
  - HAEMORRHOIDS [None]
  - GASTROOESOPHAGEAL REFLUX DISEASE [None]
  - NAUSEA [None]
  - MIGRAINE [None]
  - IMPAIRED HEALING [None]
  - VISION BLURRED [None]
  - ANGIOPATHY [None]
  - CONSTIPATION [None]
  - MENISCUS LESION [None]
  - BASEDOW'S DISEASE [None]
  - SKIN LESION [None]
  - MITRAL VALVE INCOMPETENCE [None]
  - MENOPAUSAL SYMPTOMS [None]
  - DYSURIA [None]
  - SYNOVIAL CYST [None]
  - JOINT SWELLING [None]
  - POLYNEUROPATHY [None]
  - PARAESTHESIA [None]
  - BLOOD PRESSURE DECREASED [None]
  - CATHETER SITE PAIN [None]
  - OSTEONECROSIS [None]
  - FALL [None]
  - VERTIGO POSITIONAL [None]
  - CHONDROCALCINOSIS [None]
  - FEMUR FRACTURE [None]
  - ACUTE SINUSITIS [None]
  - BACK PAIN [None]
  - IRON DEFICIENCY ANAEMIA [None]
  - VARICOSE VEIN [None]
  - OSTEOARTHRITIS [None]
  - DEPRESSION [None]
  - DYSTHYMIC DISORDER [None]
